FAERS Safety Report 8595329-X (Version None)
Quarter: 2012Q3

REPORT INFORMATION
  Report Type: 
  Country: None (occurrence: None)
  Receive Date: 20120815
  Receipt Date: 20120810
  Transmission Date: 20120928
  Serious: Yes (Hospitalization)
  Sender: FDA-Public Use
  Company Number: PHEH2012US012344

PATIENT
  Sex: Male
  Weight: 65.9 kg

DRUGS (8)
  1. TOBI [Suspect]
     Indication: CYSTIC FIBROSIS
     Dosage: 300 MG, BID
     Dates: start: 20120203, end: 20120403
  2. TIKOSYN [Concomitant]
     Indication: ATRIAL FIBRILLATION
     Dosage: 250 MG, DAILY
     Route: 048
  3. ATACAND [Concomitant]
     Indication: HYPERTENSION
     Dosage: 2 MG, DAILY
     Route: 048
  4. ASPIRIN [Concomitant]
     Indication: HYPERTENSION
     Dosage: 81 MG, BID
     Route: 048
  5. SYMBICORT [Concomitant]
     Indication: CHRONIC OBSTRUCTIVE PULMONARY DISEASE
     Dosage: 2 PUFF DAILY
  6. SPIRMA [Concomitant]
     Indication: CHRONIC OBSTRUCTIVE PULMONARY DISEASE
     Dosage: UNK UKN, UNK
  7. TOBI [Suspect]
     Indication: BRONCHIECTASIS
  8. SINGULAIR [Concomitant]
     Indication: ASTHMA
     Dosage: 10 MG, HS
     Route: 048

REACTIONS (6)
  - VENA CAVA THROMBOSIS [None]
  - PNEUMOTHORAX [None]
  - CONVULSION [None]
  - HEARING IMPAIRED [None]
  - SWELLING FACE [None]
  - MALAISE [None]
